FAERS Safety Report 7038629-7 (Version None)
Quarter: 2010Q4

REPORT INFORMATION
  Report Type: 
  Country: None (occurrence: None)
  Receive Date: 20101011
  Receipt Date: 20100929
  Transmission Date: 20110411
  Serious: No
  Sender: FDA-Public Use
  Company Number: US-PFIZER INC-2010124473

PATIENT
  Sex: Female
  Weight: 64.399 kg

DRUGS (7)
  1. LYRICA [Suspect]
     Indication: BONE PAIN
     Dosage: 25 MG, 3X/DAY
     Route: 048
     Dates: start: 20100923
  2. LYRICA [Suspect]
     Indication: PAIN
     Dosage: 25 MG, 2X/DAY
     Dates: start: 20100901, end: 20100926
  3. LOSARTAN [Concomitant]
     Indication: BLOOD CHOLESTEROL INCREASED
     Dosage: UNK
  4. SIMVASTATIN [Concomitant]
     Dosage: UNK
  5. ACETYLSALICYLIC ACID [Concomitant]
     Dosage: 81 MG, UNK
  6. METOPROLOL [Concomitant]
     Dosage: UNK
  7. TRAMADOL [Concomitant]
     Dosage: UNK

REACTIONS (5)
  - DIZZINESS [None]
  - DRUG INEFFECTIVE [None]
  - FEELING ABNORMAL [None]
  - MALAISE [None]
  - PAIN [None]
